FAERS Safety Report 16750124 (Version 1)
Quarter: 2019Q4

REPORT INFORMATION
  Report Type: Spontaneous
  Country: US (occurrence: US)
  Receive Date: 20190827
  Receipt Date: 20190827
  Transmission Date: 20200122
  Serious: Yes (Hospitalization)
  Sender: FDA-Public Use
  Company Number: None

PATIENT
  Sex: Female

DRUGS (1)
  1. GRANIX [Suspect]
     Active Substance: TBO-FILGRASTIM
     Indication: GASTRIC CANCER
     Dosage: ?          OTHER FREQUENCY:ON DAYS 3, 7 AND 1;?
     Route: 058
     Dates: start: 20190707

REACTIONS (2)
  - Product administration error [None]
  - Inappropriate schedule of product administration [None]
